FAERS Safety Report 7295003-6 (Version None)
Quarter: 2011Q1

REPORT INFORMATION
  Report Type: 
  Country: None (occurrence: None)
  Receive Date: 20110207
  Receipt Date: 20110127
  Transmission Date: 20110831
  Serious: Yes (Hospitalization)
  Sender: FDA-Public Use
  Company Number: TRP_07531_2011

PATIENT
  Sex: Male
  Weight: 87.9978 kg

DRUGS (5)
  1. PRILOSEC [Concomitant]
  2. INFERGEN [Suspect]
     Indication: HEPATITIS C
     Dosage: (15 UG QD SUBCUTANEOUS)
     Route: 058
     Dates: start: 20100802, end: 20110127
  3. SYNTHROID [Concomitant]
  4. RIBAVIRIN [Suspect]
     Indication: HEPATITIS C
     Dosage: (1400 MG, [600 MG QAM AND 800 MG QPM] ORAL), (1200 MG, DAILY ORAL)
     Route: 048
     Dates: start: 20100901, end: 20110127
  5. RIBAVIRIN [Suspect]
     Indication: HEPATITIS C
     Dosage: (1400 MG, [600 MG QAM AND 800 MG QPM] ORAL), (1200 MG, DAILY ORAL)
     Route: 048
     Dates: start: 20100802, end: 20100901

REACTIONS (12)
  - HEPATIC FAILURE [None]
  - EPISTAXIS [None]
  - ABDOMINAL DISTENSION [None]
  - ABDOMINAL PAIN [None]
  - ANAEMIA [None]
  - NEUTROPENIA [None]
  - INSOMNIA [None]
  - CHOLELITHIASIS [None]
  - FATIGUE [None]
  - ASCITES [None]
  - INTERNATIONAL NORMALISED RATIO INCREASED [None]
  - THROMBOCYTOPENIA [None]
